FAERS Safety Report 5609072-X (Version None)
Quarter: 2008Q1

REPORT INFORMATION
  Report Type: 
  Country: None (occurrence: None)
  Receive Date: 20080131
  Receipt Date: 20080117
  Transmission Date: 20080703
  Serious: Yes (Other)
  Sender: FDA-Public Use
  Company Number: US-AMGEN-US261263

PATIENT
  Sex: Female
  Weight: 54.5 kg

DRUGS (5)
  1. ENBREL [Suspect]
     Indication: PSORIASIS
     Dates: start: 20070822, end: 20070913
  2. ENBREL [Suspect]
     Indication: PSORIATIC ARTHROPATHY
  3. PRENATAL VITAMINS [Concomitant]
     Route: 048
  4. FOLIC ACID [Concomitant]
     Route: 048
     Dates: start: 20070822
  5. CALCIUM WITH VITAMIN D [Concomitant]
     Route: 048
     Dates: start: 20070822

REACTIONS (1)
  - ABORTION SPONTANEOUS [None]
